FAERS Safety Report 25402589 (Version 3)
Quarter: 2025Q4

REPORT INFORMATION
  Report Type: Report from Study
  Country: EU (occurrence: EU)
  Receive Date: 20250605
  Receipt Date: 20251219
  Transmission Date: 20260118
  Serious: Yes (Hospitalization)
  Sender: REGENERON
  Company Number: EU-SA-SAC20231009000202

PATIENT
  Age: 85 Year
  Sex: Female

DRUGS (11)
  1. CEMIPLIMAB [Suspect]
     Active Substance: CEMIPLIMAB
     Indication: Non-small cell lung cancer
     Dosage: 350 MG, Q3W
     Route: 042
     Dates: start: 20221213, end: 20230718
  2. ASPIRIN [Concomitant]
     Active Substance: ASPIRIN
     Indication: Coronary artery disease
     Dosage: 100 MG, QD
     Route: 048
     Dates: start: 201501
  3. NEBIVOLOL [Concomitant]
     Active Substance: NEBIVOLOL
     Indication: Hypertension
     Dosage: 5 MG, QD
     Route: 048
     Dates: start: 201501
  4. AMLODIPINE [Concomitant]
     Active Substance: AMLODIPINE BESYLATE
     Indication: Hypertension
     Dosage: 5 MG, QD
     Route: 048
     Dates: start: 202301
  5. RAMIPRIL [Concomitant]
     Active Substance: RAMIPRIL
     Indication: Hypertension
     Dosage: 2.5 MG, QD
     Route: 048
     Dates: start: 201501
  6. PANTOPRAZOLE [Concomitant]
     Active Substance: PANTOPRAZOLE
     Indication: Gastritis prophylaxis
     Dosage: 20 MG, QD
     Route: 048
     Dates: start: 2010
  7. PANCRELIPASE [Concomitant]
     Active Substance: PANCRELIPASE
     Indication: Pancreatitis
     Dosage: 150 MG, TID
     Route: 048
     Dates: start: 2020
  8. MOXIFLOXACIN [Concomitant]
     Active Substance: MOXIFLOXACIN
     Indication: Inflammation
     Dosage: 400 MG, QD
     Route: 048
     Dates: start: 20230823, end: 20230829
  9. NINTEDANIB [Concomitant]
     Active Substance: NINTEDANIB
     Indication: Chemotherapy
     Dosage: 400 MG, BID
     Route: 048
     Dates: start: 20230728, end: 20230907
  10. DOCETAXEL [Concomitant]
     Active Substance: DOCETAXEL
     Indication: Chemotherapy
     Dosage: 96.6 MG, OTHER
     Route: 042
     Dates: start: 20230816, end: 20230907
  11. LOPERAMIDE [Concomitant]
     Active Substance: LOPERAMIDE
     Indication: Prophylaxis
     Dosage: 2 MG, OTHER
     Route: 048
     Dates: start: 20230728, end: 20230907

REACTIONS (1)
  - Colitis [Unknown]

NARRATIVE: CASE EVENT DATE: 20230828
